FAERS Safety Report 8001097-2 (Version None)
Quarter: 2011Q4

REPORT INFORMATION
  Report Type: 
  Country: None (occurrence: None)
  Receive Date: 20111222
  Receipt Date: 20111212
  Transmission Date: 20120403
  Serious: Yes (Hospitalization, Other)
  Sender: FDA-Public Use
  Company Number: US-BAXTER-2011BH039029

PATIENT
  Sex: Male

DRUGS (1)
  1. DIANEAL [Suspect]
     Indication: PERITONEAL DIALYSIS
     Route: 033
     Dates: start: 20091006

REACTIONS (5)
  - PNEUMOTHORAX [None]
  - PERITONITIS BACTERIAL [None]
  - ACUTE MYOCARDIAL INFARCTION [None]
  - RESPIRATORY FAILURE [None]
  - PNEUMOPERITONEUM [None]
